FAERS Safety Report 12448068 (Version 2)
Quarter: 2016Q2

REPORT INFORMATION
  Report Type: Spontaneous
  Country: US (occurrence: US)
  Receive Date: 20160608
  Receipt Date: 20160614
  Transmission Date: 20160815
  Serious: No
  Sender: FDA-Public Use
  Company Number: US-BAYER-2016-109272

PATIENT
  Sex: Female

DRUGS (1)
  1. SKYLA [Suspect]
     Active Substance: LEVONORGESTREL
     Indication: MENSTRUAL CYCLE MANAGEMENT
     Dosage: 14 MCG/24HR, CONT
     Route: 015
     Dates: start: 201510

REACTIONS (3)
  - Vaginal haemorrhage [Recovered/Resolved]
  - Off label use [None]
  - Amenorrhoea [None]

NARRATIVE: CASE EVENT DATE: 201512
